FAERS Safety Report 7944454-2 (Version None)
Quarter: 2011Q4

REPORT INFORMATION
  Report Type: 
  Country: None (occurrence: None)
  Receive Date: 20111122
  Receipt Date: 20110815
  Transmission Date: 20120403
  Serious: Yes (Hospitalization)
  Sender: FDA-Public Use
  Company Number: PHHY2011US44867

PATIENT
  Age: 36 Year
  Sex: Female

DRUGS (9)
  1. CALCIUM WITH VITAMIN D (CALCIUM PHOSPHATE, CALCIUM SODIUM LACTATE, ERG [Concomitant]
  2. MAGNESIUM (MAGNESIUM) [Concomitant]
  3. BIOTIN (BIOTIN) [Concomitant]
  4. GILENYA [Suspect]
     Indication: MULTIPLE SCLEROSIS
     Dosage: 0.5 MG, QD, ORAL
     Route: 048
     Dates: start: 20110503
  5. ESTROGENS SOL/INJ [Concomitant]
  6. CELEXA [Concomitant]
  7. VITAMIN B12 [Concomitant]
  8. FISH OIL (FISH OIL) [Concomitant]
  9. MULTIVITAMINS (ASCORBIC ACID, ERGOCALCIFEROL, FOLIC ACID, NICOTINAMIDE [Concomitant]

REACTIONS (9)
  - COUGH [None]
  - MENTAL DISORDER [None]
  - MOVEMENT DISORDER [None]
  - HYPERTENSION [None]
  - ABNORMAL BEHAVIOUR [None]
  - SOMNOLENCE [None]
  - MALAISE [None]
  - HEADACHE [None]
  - DIZZINESS [None]
